FAERS Safety Report 24181359 (Version 1)
Quarter: 2024Q3

REPORT INFORMATION
  Report Type: Report from Study
  Country: US (occurrence: None)
  Receive Date: 20240807
  Receipt Date: 20240807
  Transmission Date: 20241016
  Serious: Yes (Other)
  Sender: ASTRAZENECA
  Company Number: 2022A025373

PATIENT
  Age: 27360 Day
  Sex: Female

DRUGS (1)
  1. LYNPARZA [Suspect]
     Active Substance: OLAPARIB
     Indication: Fallopian tube cancer
     Route: 048

REACTIONS (4)
  - Fall [Unknown]
  - Rib fracture [Unknown]
  - Limb fracture [Unknown]
  - Pain [Unknown]

NARRATIVE: CASE EVENT DATE: 20220107
